FAERS Safety Report 6706206-0 (Version None)
Quarter: 2010Q2

REPORT INFORMATION
  Report Type: 
  Country: None (occurrence: None)
  Receive Date: 20100503
  Receipt Date: 20100423
  Transmission Date: 20101027
  Serious: Yes (Other)
  Sender: FDA-Public Use
  Company Number: US-SANOFI-AVENTIS-2010SA012328

PATIENT
  Age: 46 Year
  Sex: Female
  Weight: 90.71 kg

DRUGS (3)
  1. LANTUS [Suspect]
     Indication: TYPE 2 DIABETES MELLITUS
     Dosage: DOSE:62 UNIT(S)
     Route: 058
     Dates: start: 20090101
  2. LANTUS [Suspect]
     Dosage: DOSE:60 UNIT(S)
     Route: 058
  3. SOLOSTAR [Suspect]
     Indication: TYPE 2 DIABETES MELLITUS
     Dates: start: 20090101

REACTIONS (1)
  - HYSTERECTOMY [None]
